FAERS Safety Report 4798278-8 (Version None)
Quarter: 2005Q4

REPORT INFORMATION
  Report Type: 
  Country: None (occurrence: None)
  Receive Date: 20051006
  Receipt Date: 20051006
  Transmission Date: 20060501
  Serious: Yes (Life-Threatening, Hospitalization)
  Sender: FDA-Public Use
  Company Number: None

PATIENT
  Age: 58 Year
  Sex: Male
  Weight: 84.1 kg

DRUGS (1)
  1. HEPARIN [Suspect]
     Indication: VENTRICULAR ASSIST DEVICE INSERTION
     Dosage: DOSE TITRATED  APTT 45-55 CONTINUOUS IV
     Route: 042
     Dates: start: 20050116

REACTIONS (4)
  - ACTIVATED PARTIAL THROMBOPLASTIN TIME PROLONGED [None]
  - HAEMORRHAGE [None]
  - PLEURAL EFFUSION [None]
  - RESPIRATORY ARREST [None]
